FAERS Safety Report 15702930 (Version 3)
Quarter: 2019Q4

REPORT INFORMATION
  Report Type: Spontaneous
  Country: CA (occurrence: CA)
  Receive Date: 20181210
  Receipt Date: 20191014
  Transmission Date: 20200122
  Serious: Yes (Other)
  Sender: FDA-Public Use
  Company Number: CA-TEVA-2018-CA-984864

PATIENT
  Age: 55 Year
  Sex: Female

DRUGS (5)
  1. CAPECITABINE. [Concomitant]
     Active Substance: CAPECITABINE
  2. LETROZOLE. [Concomitant]
     Active Substance: LETROZOLE
  3. TAMOXIFEN CITRATE. [Suspect]
     Active Substance: TAMOXIFEN CITRATE
     Indication: PRODUCT USED FOR UNKNOWN INDICATION
     Route: 048
  4. FULVESTRANT. [Suspect]
     Active Substance: FULVESTRANT
     Indication: PRODUCT USED FOR UNKNOWN INDICATION
     Route: 030
  5. IBRANCE [Suspect]
     Active Substance: PALBOCICLIB
     Indication: PRODUCT USED FOR UNKNOWN INDICATION
     Route: 048

REACTIONS (3)
  - Off label use [Unknown]
  - Malignant neoplasm progression [Unknown]
  - Bone pain [Unknown]
